FAERS Safety Report 17110936 (Version 1)
Quarter: 2019Q4

REPORT INFORMATION
  Report Type: Spontaneous
  Country: IL (occurrence: IL)
  Receive Date: 20191204
  Receipt Date: 20191204
  Transmission Date: 20200122
  Serious: Yes (Other)
  Sender: FDA-Public Use
  Company Number: NVSC2019IL056702

PATIENT
  Age: 38 Year
  Sex: Female

DRUGS (1)
  1. RITALIN [Suspect]
     Active Substance: METHYLPHENIDATE HYDROCHLORIDE
     Indication: ATTENTION DEFICIT/HYPERACTIVITY DISORDER
     Dosage: UNK
     Route: 065

REACTIONS (5)
  - Sclerodactylia [Recovering/Resolving]
  - Arthralgia [Recovering/Resolving]
  - Raynaud^s phenomenon [Not Recovered/Not Resolved]
  - Systemic scleroderma [Recovering/Resolving]
  - Skin ulcer [Recovering/Resolving]
